FAERS Safety Report 12543317 (Version 2)
Quarter: 2017Q1

REPORT INFORMATION
  Report Type: Spontaneous
  Country: AU (occurrence: AU)
  Receive Date: 20160711
  Receipt Date: 20170216
  Transmission Date: 20170428
  Serious: Yes (Hospitalization)
  Sender: FDA-Public Use
  Company Number: AU-ROCHE-1788620

PATIENT
  Sex: Female

DRUGS (6)
  1. TACROLIMUS. [Concomitant]
     Active Substance: TACROLIMUS
  2. MYCOPHENOLATE MOFETIL. [Suspect]
     Active Substance: MYCOPHENOLATE MOFETIL
     Indication: PRODUCT USED FOR UNKNOWN INDICATION
     Route: 065
  3. CYCLOSPORINE. [Concomitant]
     Active Substance: CYCLOSPORINE
  4. PREDNISOLONE. [Concomitant]
     Active Substance: PREDNISOLONE
     Route: 065
  5. MABTHERA [Suspect]
     Active Substance: RITUXIMAB
     Dosage: DOSE - 700 MG X 2
     Route: 042
  6. MABTHERA [Suspect]
     Active Substance: RITUXIMAB
     Indication: DERMATOMYOSITIS
     Dosage: START: 2 YEARS AGO
     Route: 042

REACTIONS (4)
  - Respiratory failure [Unknown]
  - Blood creatine phosphokinase increased [Unknown]
  - Off label use [Unknown]
  - Skin disorder [Unknown]
